FAERS Safety Report 13140889 (Version 1)
Quarter: 2017Q1

REPORT INFORMATION
  Report Type: Spontaneous
  Country: US (occurrence: US)
  Receive Date: 20170123
  Receipt Date: 20170123
  Transmission Date: 20170428
  Serious: No
  Sender: FDA-Public Use
  Company Number: US-UNITED THERAPEUTICS-UNT-2016-015139

PATIENT
  Age: 75 Year
  Sex: Female
  Weight: 67.12 kg

DRUGS (5)
  1. ORENITRAM [Suspect]
     Active Substance: TREPROSTINIL
     Dosage: 0.25 MG, BID
     Route: 048
  2. ORENITRAM [Suspect]
     Active Substance: TREPROSTINIL
     Indication: PULMONARY HYPERTENSION
     Dosage: 0.5 MG,BID
     Route: 048
     Dates: start: 20160913
  3. OPSUMIT [Concomitant]
     Active Substance: MACITENTAN
     Indication: PRODUCT USED FOR UNKNOWN INDICATION
  4. DILTIAZEM. [Concomitant]
     Active Substance: DILTIAZEM
     Indication: PRODUCT USED FOR UNKNOWN INDICATION
  5. ADCIRCA [Concomitant]
     Active Substance: TADALAFIL
     Indication: PRODUCT USED FOR UNKNOWN INDICATION

REACTIONS (9)
  - Chills [Unknown]
  - Abasia [Unknown]
  - Throat irritation [Unknown]
  - Dyspnoea [Unknown]
  - Pyrexia [Unknown]
  - Headache [Unknown]
  - Muscular weakness [Unknown]
  - Influenza like illness [Unknown]
  - Pain [Unknown]

NARRATIVE: CASE EVENT DATE: 201609
